FAERS Safety Report 11060774 (Version 3)
Quarter: 2015Q3

REPORT INFORMATION
  Report Type: Report from Study
  Country: DE (occurrence: DE)
  Receive Date: 20150423
  Receipt Date: 20150731
  Transmission Date: 20151125
  Serious: Yes (Other)
  Sender: FDA-Public Use
  Company Number: GXKR2015DE000869

PATIENT
  Age: 32 Year
  Sex: Male
  Weight: 92 kg

DRUGS (2)
  1. FILGRASTIM [Suspect]
     Active Substance: FILGRASTIM
     Dosage: 48 MIU DAILY FOR 4 DAYS
     Route: 058
     Dates: start: 20120209, end: 20120213
  2. FILGRASTIM [Suspect]
     Active Substance: FILGRASTIM
     Indication: HAEMATOPOIETIC STEM CELL MOBILISATION
     Dosage: 30 MIU DAILY FOR 5 DAYS
     Route: 058
     Dates: start: 20120209, end: 20120213

REACTIONS (1)
  - Sarcoidosis [Not Recovered/Not Resolved]

NARRATIVE: CASE EVENT DATE: 201306
